FAERS Safety Report 18426532 (Version 1)
Quarter: 2020Q4

REPORT INFORMATION
  Report Type: Spontaneous
  Country: CA (occurrence: CA)
  Receive Date: 20201026
  Receipt Date: 20201026
  Transmission Date: 20210114
  Serious: Yes (Other)
  Sender: FDA-Public Use
  Company Number: CA-PFIZER INC-2020411229

PATIENT
  Age: 68 Year
  Sex: Female

DRUGS (5)
  1. ALFACALCIDOL [Suspect]
     Active Substance: ALFACALCIDOL
     Indication: END STAGE RENAL DISEASE
     Dosage: UNK
  2. CALCITRIOL. [Suspect]
     Active Substance: CALCITRIOL
     Indication: END STAGE RENAL DISEASE
     Dosage: UNK
  3. CALCIUM CHLORIDE. [Suspect]
     Active Substance: CALCIUM CHLORIDE
     Indication: END STAGE RENAL DISEASE
     Dosage: UNK
  4. CALCIUM CARBONATE. [Suspect]
     Active Substance: CALCIUM CARBONATE
     Indication: END STAGE RENAL DISEASE
     Dosage: UNK
  5. WARFARIN [Suspect]
     Active Substance: WARFARIN
     Indication: END STAGE RENAL DISEASE
     Dosage: UNK

REACTIONS (3)
  - Product use in unapproved indication [Unknown]
  - Calciphylaxis [Unknown]
  - Off label use [Unknown]
